FAERS Safety Report 25732775 (Version 1)
Quarter: 2025Q3

REPORT INFORMATION
  Report Type: Report from Study
  Country: US (occurrence: US)
  Receive Date: 20250827
  Receipt Date: 20250827
  Transmission Date: 20251021
  Serious: No
  Sender: BIOGEN
  Company Number: US-BIOGEN-2025BI01321565

PATIENT
  Sex: Female

DRUGS (2)
  1. ZURZUVAE [Suspect]
     Active Substance: ZURANOLONE
     Indication: Perinatal depression
     Dosage: TAKE 2 CAPSULES EVERY DAY FOR 14 DAYS.
     Route: 050
     Dates: start: 20250806, end: 20250813
  2. ZURZUVAE [Suspect]
     Active Substance: ZURANOLONE
     Dosage: REDUCED TO 25 MG ON DAY 8
     Route: 050
     Dates: start: 20250814

REACTIONS (1)
  - Somnolence [Unknown]
